FAERS Safety Report 7804403-4 (Version None)
Quarter: 2011Q4

REPORT INFORMATION
  Report Type: 
  Country: None (occurrence: None)
  Receive Date: 20111010
  Receipt Date: 20111003
  Transmission Date: 20120403
  Serious: Yes (Other)
  Sender: FDA-Public Use
  Company Number: GB-PFIZER INC-2011222645

PATIENT
  Sex: Male

DRUGS (1)
  1. BENEFIX [Suspect]

REACTIONS (1)
  - FACTOR IX INHIBITION [None]
